FAERS Safety Report 5232841-5 (Version None)
Quarter: 2007Q1

REPORT INFORMATION
  Report Type: 
  Country: None (occurrence: None)
  Receive Date: 20070207
  Receipt Date: 20070130
  Transmission Date: 20070707
  Serious: Yes (Other)
  Sender: FDA-Public Use
  Company Number: 2007CG00199

PATIENT
  Age: 70 Year
  Sex: Male
  Weight: 70 kg

DRUGS (7)
  1. NEXIUM [Suspect]
     Route: 048
     Dates: start: 20061201, end: 20061201
  2. NEXIUM [Interacting]
     Route: 048
     Dates: start: 20070101
  3. ZOVIRAX [Interacting]
     Indication: ENCEPHALITIS
     Route: 042
     Dates: start: 20061201
  4. TAHOR [Concomitant]
     Dates: end: 20061201
  5. TAHOR [Concomitant]
     Dates: start: 20070101
  6. NICARDIPINE HCL [Concomitant]
     Dates: end: 20061201
  7. NICARDIPINE HCL [Concomitant]
     Dates: start: 20070101

REACTIONS (2)
  - DRUG INTERACTION [None]
  - RENAL FAILURE ACUTE [None]
